FAERS Safety Report 15150706 (Version 1)
Quarter: 2018Q3

REPORT INFORMATION
  Report Type: Spontaneous
  Country: JP (occurrence: JP)
  Receive Date: 20180716
  Receipt Date: 20180716
  Transmission Date: 20181010
  Serious: Yes (Other)
  Sender: FDA-Public Use
  Company Number: JP-MYLANLABS-2018M1052023

PATIENT
  Age: 50 Year
  Sex: Female

DRUGS (3)
  1. CARBON DIOXIDE. [Concomitant]
     Active Substance: CARBON DIOXIDE
     Indication: PNEUMOPERITONEUM
     Dosage: INTRODUCED AT 8 MMHG OF INTRA?ABDOMINAL PRESSURE
     Route: 050
  2. PROPOFOL. [Suspect]
     Active Substance: PROPOFOL
     Indication: ANAESTHESIA
     Route: 042
  3. REMIFENTANIL [Suspect]
     Active Substance: REMIFENTANIL
     Indication: ANAESTHESIA
     Route: 042

REACTIONS (2)
  - Bradycardia [Recovered/Resolved]
  - Cardiac arrest [Recovered/Resolved]
